FAERS Safety Report 12369694 (Version 1)
Quarter: 2016Q2

REPORT INFORMATION
  Report Type: Spontaneous
  Country: US (occurrence: US)
  Receive Date: 20160516
  Receipt Date: 20160516
  Transmission Date: 20160815
  Serious: No
  Sender: FDA-Public Use
  Company Number: US-AUROBINDO-AUR-APL-2016-00028

PATIENT
  Age: 23 Year
  Sex: Female
  Weight: 55.78 kg

DRUGS (2)
  1. TYLENOL [Concomitant]
     Active Substance: ACETAMINOPHEN
     Indication: PRODUCT USED FOR UNKNOWN INDICATION
     Dosage: UNK
     Route: 065
  2. CEFUROXIME AXETIL TABLETS USP 250 MG [Suspect]
     Active Substance: CEFUROXIME AXETIL
     Indication: CHRONIC SINUSITIS
     Dosage: 250 MG, TWO TIMES A DAY
     Route: 048

REACTIONS (1)
  - Skin exfoliation [Not Recovered/Not Resolved]

NARRATIVE: CASE EVENT DATE: 20151229
